FAERS Safety Report 6406444-0 (Version None)
Quarter: 2009Q4

REPORT INFORMATION
  Report Type: 
  Country: None (occurrence: None)
  Receive Date: 20091014
  Receipt Date: 20091006
  Transmission Date: 20100525
  Serious: Yes (Hospitalization, Other)
  Sender: FDA-Public Use
  Company Number: SPV1-2009-02000

PATIENT
  Age: 18 Year
  Sex: Female
  Weight: 56.7 kg

DRUGS (3)
  1. VYVANSE [Suspect]
     Indication: ATTENTION DEFICIT/HYPERACTIVITY DISORDER
     Dosage: 1. 30 MG, 1X/DAY:QD, ORAL
     Route: 048
     Dates: start: 20080201
  2. DILANTIN [Suspect]
     Indication: CONVULSION
     Dosage: ORAL
     Route: 048
     Dates: start: 20080101, end: 20081101
  3. KEPPRA [Concomitant]

REACTIONS (3)
  - ANTICONVULSANT DRUG LEVEL INCREASED [None]
  - ARACHNOID CYST [None]
  - GRAND MAL CONVULSION [None]
